FAERS Safety Report 7116288-2 (Version None)
Quarter: 2010Q4

REPORT INFORMATION
  Report Type: 
  Country: None (occurrence: None)
  Receive Date: 20101115
  Receipt Date: 20101028
  Transmission Date: 20110411
  Serious: Yes (Other)
  Sender: FDA-Public Use
  Company Number: JPI-P-012852

PATIENT
  Sex: Female

DRUGS (1)
  1. LUVOX [Suspect]
     Indication: PRODUCT USED FOR UNKNOWN INDICATION
     Dosage: ,ORAL, (150MG-200MG), ORAL
     Route: 048

REACTIONS (1)
  - PHYSICAL ASSAULT [None]
